FAERS Safety Report 25901813 (Version 1)
Quarter: 2025Q4

REPORT INFORMATION
  Report Type: Spontaneous
  Country: US (occurrence: None)
  Receive Date: 20251008
  Receipt Date: 20251008
  Transmission Date: 20260118
  Serious: Yes (Hospitalization)
  Sender: FDA-CTU
  Company Number: None

PATIENT
  Sex: Male

DRUGS (1)
  1. GAMMAGARD LIQUID [Suspect]
     Active Substance: HUMAN IMMUNOGLOBULIN G
     Indication: Immunoglobulin therapy
     Dosage: OTHER STRENGTH : 10GM/100M;?OTHER FREQUENCY : EVERY 4 WEEKS;?
     Route: 042
     Dates: start: 20250106

REACTIONS (2)
  - Atypical mycobacterial infection [None]
  - Crohn^s disease [None]
